FAERS Safety Report 8523250-1 (Version None)
Quarter: 2012Q3

REPORT INFORMATION
  Report Type: 
  Country: None (occurrence: None)
  Receive Date: 20120720
  Receipt Date: 20120706
  Transmission Date: 20120928
  Serious: Yes (Other)
  Sender: FDA-Public Use
  Company Number: CO-AMGEN-COLSP2012037239

PATIENT
  Age: 53 Year
  Sex: Female

DRUGS (6)
  1. LEFLUNOMIDE [Concomitant]
     Indication: TUBERCULOSIS
     Dosage: UNK
     Dates: start: 20120111
  2. PREDNISOLONE [Concomitant]
     Dosage: UNK
     Dates: start: 20120101
  3. ISONIAZID [Concomitant]
     Indication: TUBERCULOSIS
     Dosage: UNK
     Route: 065
     Dates: start: 20120111
  4. ENBREL [Suspect]
     Indication: RHEUMATOID ARTHRITIS
     Dosage: 50 MG, WEEKLY
     Route: 058
     Dates: start: 20120217
  5. CALCIUM [Concomitant]
     Dosage: 300 MG, UNK
     Dates: start: 20090101
  6. LOVASTATIN [Concomitant]
     Indication: BLOOD CHOLESTEROL
     Dosage: UNK
     Dates: start: 20120101

REACTIONS (6)
  - RHINITIS [None]
  - SOCIAL AVOIDANT BEHAVIOUR [None]
  - ALOPECIA [None]
  - ONYCHOCLASIS [None]
  - APTYALISM [None]
  - EMOTIONAL DISTRESS [None]
